FAERS Safety Report 17096309 (Version 1)
Quarter: 2019Q4

REPORT INFORMATION
  Report Type: Spontaneous
  Country: CH (occurrence: CH)
  Receive Date: 20191202
  Receipt Date: 20191202
  Transmission Date: 20200122
  Serious: Yes (Other)
  Sender: FDA-Public Use
  Company Number: CH-TEVA-2019-CH-1147175

PATIENT
  Age: 87 Year
  Sex: Female

DRUGS (21)
  1. CEFTRIAXONE. [Suspect]
     Active Substance: CEFTRIAXONE
     Dosage: 4 GRAM DAILY;
     Route: 042
     Dates: start: 20191107, end: 20191113
  2. BELOC ZOK [Concomitant]
     Active Substance: METOPROLOL SUCCINATE
  3. TORASEMIDE [Concomitant]
     Active Substance: TORSEMIDE
     Dates: start: 20191113
  4. LASIX [Concomitant]
     Active Substance: FUROSEMIDE
     Dates: start: 20191110, end: 20191112
  5. QUETIAPIN [Concomitant]
     Active Substance: QUETIAPINE
     Dates: start: 20191110
  6. ATORVASTATINE [Concomitant]
     Active Substance: ATORVASTATIN
  7. CETIRIZINE [Concomitant]
     Active Substance: CETIRIZINE HYDROCHLORIDE
     Dates: start: 20191110, end: 20191114
  8. LAXOBERON [Concomitant]
     Active Substance: SODIUM PICOSULFATE
     Dosage: AS NECESSARY
     Dates: start: 20191108
  9. IPRAMOL [Concomitant]
     Active Substance: ALBUTEROL SULFATE\IPRATROPIUM BROMIDE
     Dosage: AS NECESSARY
     Dates: start: 20191110
  10. CLEXANE [Concomitant]
     Active Substance: ENOXAPARIN SODIUM
     Dates: start: 20191111
  11. CLEXANE [Concomitant]
     Active Substance: ENOXAPARIN SODIUM
     Dates: start: 20191107, end: 20191108
  12. VIBRAMYCINE [Concomitant]
     Dates: start: 20191114
  13. TAMIFLU [Concomitant]
     Active Substance: OSELTAMIVIR PHOSPHATE
     Dates: start: 20191106, end: 20191108
  14. CO-AMOXI [Suspect]
     Active Substance: AMOXICILLIN\CLAVULANATE POTASSIUM
     Dosage: 8.8 GRAM DAILY;
     Route: 042
     Dates: start: 20191107, end: 20191113
  15. CLARITHROMYCINE [Concomitant]
     Active Substance: CLARITHROMYCIN
     Dates: start: 20191106, end: 20191107
  16. ZANIDIP [Concomitant]
     Active Substance: LERCANIDIPINE HYDROCHLORIDE
     Dates: end: 20191107
  17. ACIDUM FOLICUM [Concomitant]
     Active Substance: FOLIC ACID
  18. PURSANA [Concomitant]
     Active Substance: FIG FRUIT OIL\SORBITOL
     Dates: start: 20191108
  19. DAFALGAN [Concomitant]
     Active Substance: ACETAMINOPHEN
     Dosage: AS NECESSARY
     Dates: start: 20191108
  20. ELIQUIS [Concomitant]
     Active Substance: APIXABAN
     Dates: start: 20191110, end: 20191110
  21. ASPIRIN CARDIO [Concomitant]
     Active Substance: ASPIRIN

REACTIONS (2)
  - Rash macular [Recovering/Resolving]
  - Hypersensitivity [Recovering/Resolving]

NARRATIVE: CASE EVENT DATE: 20191110
